FAERS Safety Report 4405170-7 (Version None)
Quarter: 2004Q3

REPORT INFORMATION
  Report Type: 
  Country: None (occurrence: None)
  Receive Date: 20040722
  Receipt Date: 20040722
  Transmission Date: 20050211
  Serious: Yes (Hospitalization)
  Sender: FDA-Public Use
  Company Number: None

PATIENT
  Age: 67 Year
  Sex: Female
  Weight: 61 kg

DRUGS (9)
  1. DOCETAXEL [Suspect]
     Indication: OVARIAN CANCER
     Dosage: (Q 3 WK SCHEDULE) 80MG/M2 IV
     Route: 042
     Dates: start: 20040707
  2. DOCETAXEL [Suspect]
     Indication: RECURRENT CANCER
     Dosage: (Q 3 WK SCHEDULE) 80MG/M2 IV
     Route: 042
     Dates: start: 20040707
  3. CARBOPLATIN [Suspect]
     Indication: OVARIAN CANCER
     Dosage: AUC 6
     Dates: start: 20040707
  4. CARBOPLATIN [Suspect]
     Indication: RECURRENT CANCER
     Dosage: AUC 6
     Dates: start: 20040707
  5. MIACALCIN [Concomitant]
  6. CALCIUM [Concomitant]
  7. LOMOTIL [Concomitant]
  8. PRILOSEC [Concomitant]
  9. IMODIUM [Concomitant]

REACTIONS (4)
  - CULTURE URINE POSITIVE [None]
  - ESCHERICHIA INFECTION [None]
  - NEUTROPHIL COUNT DECREASED [None]
  - PYREXIA [None]
